FAERS Safety Report 5446190-3 (Version None)
Quarter: 2007Q3

REPORT INFORMATION
  Report Type: 
  Country: None (occurrence: None)
  Receive Date: 20070907
  Receipt Date: 20070904
  Transmission Date: 20080115
  Serious: Yes (Death)
  Sender: FDA-Public Use
  Company Number: SEWYE265105SEP07

PATIENT
  Sex: Female

DRUGS (1)
  1. LOETTE-28 [Suspect]
     Indication: CONTRACEPTION
     Route: 048
     Dates: start: 20070501, end: 20070610

REACTIONS (1)
  - CEREBRAL INFARCTION [None]
